FAERS Safety Report 8140796-9 (Version None)
Quarter: 2012Q1

REPORT INFORMATION
  Report Type: 
  Country: None (occurrence: None)
  Receive Date: 20120216
  Receipt Date: 20120209
  Transmission Date: 20120608
  Serious: Yes (Other)
  Sender: FDA-Public Use
  Company Number: IT-BRISTOL-MYERS SQUIBB COMPANY-16382475

PATIENT
  Age: 32 Year
  Sex: Male

DRUGS (3)
  1. VEPESID [Suspect]
     Indication: TESTIS CANCER
     Route: 042
     Dates: start: 20110923, end: 20111210
  2. BLEOMYCIN SULFATE [Suspect]
     Indication: TESTIS CANCER
     Route: 042
     Dates: start: 20110923, end: 20111210
  3. CARBOPLATIN [Suspect]
     Indication: TESTIS CANCER
     Route: 042
     Dates: start: 20110923, end: 20111210

REACTIONS (1)
  - NEUTROPENIA [None]
